FAERS Safety Report 10694871 (Version 2)
Quarter: 2015Q1

REPORT INFORMATION
  Report Type: Spontaneous
  Country: JP (occurrence: None)
  Receive Date: 20150105
  Receipt Date: 20150116
  Transmission Date: 20150721
  Serious: Yes (Life-Threatening)
  Sender: FDA-Public Use
  Company Number: 2683669

PATIENT
  Age: 89 Year
  Sex: Male
  Weight: 54 kg

DRUGS (6)
  1. FUROSEMIDE. [Concomitant]
     Active Substance: FUROSEMIDE
  2. ROPIVACAINE HYDROCHLORIDE. [Suspect]
     Active Substance: ROPIVACAINE HYDROCHLORIDE
     Indication: NERVE BLOCK
     Dosage: 7.5 MG MILLIGRAM(S), UNKNOWN, UNKNOWN
     Dates: start: 20140425, end: 20140425
  3. AMLODIPINE BESILATE [Concomitant]
     Active Substance: AMLODIPINE BESYLATE
  4. DEXMEDETOMIDINE HYDROCHLORIDE. [Suspect]
     Active Substance: DEXMEDETOMIDINE HYDROCHLORIDE
     Indication: SEDATION
     Route: 041
     Dates: start: 20140425, end: 20140425
  5. TORASEMIDE [Concomitant]
     Active Substance: TORSEMIDE
  6. ISOSORBIDE DINTRATE [Concomitant]

REACTIONS (3)
  - Respiratory failure [None]
  - Respiratory depression [None]
  - Bronchial secretion retention [None]

NARRATIVE: CASE EVENT DATE: 20140425
